FAERS Safety Report 17113622 (Version 2)
Quarter: 2019Q4

REPORT INFORMATION
  Report Type: Report from Study
  Country: US (occurrence: US)
  Receive Date: 20191205
  Receipt Date: 20191206
  Transmission Date: 20200122
  Serious: Yes (Death)
  Sender: FDA-Public Use
  Company Number: US-ROCHE-2387375

PATIENT
  Sex: Male

DRUGS (4)
  1. HERCEPTIN [Suspect]
     Active Substance: TRASTUZUMAB
     Dosage: INFUSE 580 MG INTRAVENOUSLY AS THE LOADING DOSE
     Route: 042
  2. PERJETA [Suspect]
     Active Substance: PERTUZUMAB
     Indication: COLON CANCER
     Dosage: 1 LOADING DOSE
     Route: 042
     Dates: start: 20190805
  3. HERCEPTIN [Suspect]
     Active Substance: TRASTUZUMAB
     Indication: COLON CANCER
     Dosage: 1 OVER 90 MINUTES
     Route: 042
     Dates: start: 20190805
  4. PERJETA [Suspect]
     Active Substance: PERTUZUMAB
     Dosage: INFUSE 840MG INTRAVENOUSLY LOADING DOSE
     Route: 042

REACTIONS (3)
  - Intentional product use issue [Unknown]
  - Off label use [Unknown]
  - Death [Fatal]
